FAERS Safety Report 21844606 (Version 3)
Quarter: 2025Q2

REPORT INFORMATION
  Report Type: Spontaneous
  Country: PL (occurrence: PL)
  Receive Date: 20230110
  Receipt Date: 20250624
  Transmission Date: 20250716
  Serious: Yes (Hospitalization, Other)
  Sender: MYLAN
  Company Number: PL-SUN PHARMACEUTICAL INDUSTRIES LTD-2022RR-365441

PATIENT
  Age: 28 Year
  Sex: Female

DRUGS (24)
  1. ARIPIPRAZOLE [Suspect]
     Active Substance: ARIPIPRAZOLE
     Indication: Acute psychosis
  2. ARIPIPRAZOLE [Suspect]
     Active Substance: ARIPIPRAZOLE
     Route: 065
  3. ARIPIPRAZOLE [Suspect]
     Active Substance: ARIPIPRAZOLE
     Route: 065
  4. ARIPIPRAZOLE [Suspect]
     Active Substance: ARIPIPRAZOLE
  5. CITALOPRAM [Suspect]
     Active Substance: CITALOPRAM
     Indication: Acute psychosis
     Route: 065
  6. CITALOPRAM [Suspect]
     Active Substance: CITALOPRAM
     Indication: Insomnia
  7. CITALOPRAM [Suspect]
     Active Substance: CITALOPRAM
     Indication: Restlessness
  8. CITALOPRAM [Suspect]
     Active Substance: CITALOPRAM
     Route: 065
  9. CITALOPRAM [Suspect]
     Active Substance: CITALOPRAM
     Route: 065
  10. CITALOPRAM [Suspect]
     Active Substance: CITALOPRAM
  11. CITALOPRAM [Suspect]
     Active Substance: CITALOPRAM
  12. CITALOPRAM [Suspect]
     Active Substance: CITALOPRAM
     Route: 065
  13. QUETIAPINE [Suspect]
     Active Substance: QUETIAPINE
     Indication: Acute psychosis
  14. QUETIAPINE [Suspect]
     Active Substance: QUETIAPINE
     Route: 065
  15. QUETIAPINE [Suspect]
     Active Substance: QUETIAPINE
     Route: 065
  16. QUETIAPINE [Suspect]
     Active Substance: QUETIAPINE
  17. OLANZAPINE [Suspect]
     Active Substance: OLANZAPINE
     Indication: Acute psychosis
  18. OLANZAPINE [Suspect]
     Active Substance: OLANZAPINE
     Route: 048
  19. OLANZAPINE [Suspect]
     Active Substance: OLANZAPINE
     Route: 048
  20. OLANZAPINE [Suspect]
     Active Substance: OLANZAPINE
  21. ALPRAZOLAM [Suspect]
     Active Substance: ALPRAZOLAM
     Indication: Acute psychosis
  22. ALPRAZOLAM [Suspect]
     Active Substance: ALPRAZOLAM
     Indication: Restlessness
     Route: 065
  23. ALPRAZOLAM [Suspect]
     Active Substance: ALPRAZOLAM
     Indication: Insomnia
     Route: 065
  24. ALPRAZOLAM [Suspect]
     Active Substance: ALPRAZOLAM

REACTIONS (18)
  - Memory impairment [Unknown]
  - Hyperprolactinaemia [Unknown]
  - Disease progression [Unknown]
  - Disturbance in attention [Unknown]
  - Headache [Unknown]
  - Hypoaesthesia [Unknown]
  - Hallucination, auditory [Recovered/Resolved]
  - Hallucination, visual [Recovered/Resolved]
  - Hallucination, olfactory [Recovered/Resolved]
  - Restlessness [Recovered/Resolved]
  - Abnormal behaviour [Recovered/Resolved]
  - Condition aggravated [Recovering/Resolving]
  - Delusion [Recovered/Resolved]
  - Decreased appetite [Recovering/Resolving]
  - Anxiety [Recovered/Resolved]
  - Agitation [Recovered/Resolved]
  - Fear of eating [Recovered/Resolved]
  - Dysarthria [Recovering/Resolving]
